FAERS Safety Report 5221686-8 (Version None)
Quarter: 2007Q1

REPORT INFORMATION
  Report Type: 
  Country: None (occurrence: None)
  Receive Date: 20070129
  Receipt Date: 20070115
  Transmission Date: 20070707
  Serious: Yes (Other)
  Sender: FDA-Public Use
  Company Number: DE-PURDUE-DEU_2006_0002673

PATIENT
  Age: 61 Year
  Sex: Female
  Weight: 105 kg

DRUGS (7)
  1. IBUPROFEN [Concomitant]
  2. INSUMAN BASAL [Concomitant]
  3. OXYCODONE HCL/NALOXONE HCL CR TAB20/10MG [Suspect]
     Indication: PAIN
     Dosage: 40 MG, TID
     Route: 048
     Dates: start: 20061115, end: 20061116
  4. AMIODARONE HCL [Concomitant]
  5. DELIX PLUS [Concomitant]
  6. SALBUTAMOL [Concomitant]
  7. FORADIL [Concomitant]

REACTIONS (3)
  - ANGINA PECTORIS [None]
  - DYSPNOEA [None]
  - INCORRECT DOSE ADMINISTERED [None]
